FAERS Safety Report 4522072-6 (Version None)
Quarter: 2004Q4

REPORT INFORMATION
  Report Type: 
  Country: None (occurrence: None)
  Receive Date: 20041206
  Receipt Date: 20041122
  Transmission Date: 20050328
  Serious: Yes (Life-Threatening, Hospitalization, Other)
  Sender: FDA-Public Use
  Company Number: 2004098610

PATIENT
  Age: 66 Year
  Sex: Male

DRUGS (8)
  1. SERTRALINE (SERTRALINE) [Suspect]
     Indication: DEPRESSION
     Dosage: 300 MG (100 MG, 3 IN 1 D), ORAL
     Route: 048
  2. ARICEPT [Concomitant]
     Indication: DEMENTIA ALZHEIMER'S TYPE
     Dosage: 5 MG ( 5 MG, 1 IN 1 D), ORAL
     Route: 048
     Dates: start: 20040108, end: 20040115
  3. PROCYCLIDINE HYDROCHLORIDE (PROCYCLIDINE HYDROCHLORIDE) [Suspect]
     Indication: PARKINSON'S DISEASE
     Dosage: 15 MG ( 5 MG, 3 IN 1 D), ORAL
     Route: 048
  4. CLONAZEPAM [Concomitant]
  5. METOPROLOL TARTRATE [Concomitant]
  6. IRBESARTAN [Concomitant]
  7. LORMETAZEPAM (LORMETAZEPAM) [Concomitant]
  8. ACENOCOUMAROL (ACENCOCOUMAROL) [Concomitant]

REACTIONS (16)
  - ALANINE AMINOTRANSFERASE INCREASED [None]
  - ASPARTATE AMINOTRANSFERASE INCREASED [None]
  - BLOOD GLUCOSE INCREASED [None]
  - BLOOD PRESSURE SYSTOLIC INCREASED [None]
  - BLOOD UREA INCREASED [None]
  - CHOLINERGIC SYNDROME [None]
  - DEHYDRATION [None]
  - DISORIENTATION [None]
  - DYSKINESIA [None]
  - HYPERNATRAEMIA [None]
  - INFECTION [None]
  - LEUKOCYTOSIS [None]
  - LIVER DISORDER [None]
  - NEUROLEPTIC MALIGNANT SYNDROME [None]
  - RESPIRATORY FAILURE [None]
  - RHABDOMYOLYSIS [None]
